FAERS Safety Report 7816059-5 (Version None)
Quarter: 2011Q4

REPORT INFORMATION
  Report Type: 
  Country: None (occurrence: None)
  Receive Date: 20111015
  Receipt Date: 20111005
  Transmission Date: 20120403
  Serious: Yes (Other)
  Sender: FDA-Public Use
  Company Number: US-ASTRAZENECA-2011SE38731

PATIENT
  Age: 59 Year
  Sex: Female

DRUGS (3)
  1. STOMACH MEDICINES [Concomitant]
  2. NEXIUM [Suspect]
     Indication: GASTROOESOPHAGEAL REFLUX DISEASE
     Route: 048
  3. ROSUVASTATIN [Suspect]

REACTIONS (4)
  - IMPAIRED WORK ABILITY [None]
  - CENTRAL NERVOUS SYSTEM LESION [None]
  - DRUG INTOLERANCE [None]
  - MULTIPLE SCLEROSIS [None]
